FAERS Safety Report 12056447 (Version 1)
Quarter: 2016Q1

REPORT INFORMATION
  Report Type: Other
  Country: TR (occurrence: TR)
  Receive Date: 20160210
  Receipt Date: 20160210
  Transmission Date: 20160526
  Serious: Yes (Congenital Anomaly, Other)
  Sender: FDA-Public Use
  Company Number: TR-DEXPHARM-20160124

PATIENT

DRUGS (4)
  1. LEVETIRACETAM. [Suspect]
     Active Substance: LEVETIRACETAM
  2. TOPIRAMATE. [Suspect]
     Active Substance: TOPIRAMATE
  3. FOLIC ACID. [Concomitant]
     Active Substance: FOLIC ACID
  4. CARBAMAZEPINE. [Suspect]
     Active Substance: CARBAMAZEPINE

REACTIONS (2)
  - Foetal exposure during pregnancy [Unknown]
  - Hypospadias [Unknown]
